FAERS Safety Report 8109286 (Version 6)
Quarter: 2013Q4

REPORT INFORMATION
  Report Type: Spontaneous
  Country: US (occurrence: US)
  Receive Date: 20110826
  Receipt Date: 20131202
  Transmission Date: 20140711
  Serious: Yes (Hospitalization)
  Sender: FDA-Public Use
  Company Number: US-BAYER-2011-075057

PATIENT
  Age: 29 Year
  Sex: Female
  Weight: 73 kg

DRUGS (3)
  1. YASMIN [Suspect]
     Indication: CONTRACEPTION
     Dosage: UNK
     Route: 048
     Dates: start: 2002, end: 2003
  2. YASMIN [Suspect]
     Indication: PREMENSTRUAL SYNDROME
  3. TYLENOL WITH CODEINE [Concomitant]

REACTIONS (2)
  - Gallbladder injury [None]
  - Cholecystitis chronic [None]
